FAERS Safety Report 6187413-5 (Version None)
Quarter: 2009Q2

REPORT INFORMATION
  Report Type: 
  Country: None (occurrence: None)
  Receive Date: 20090512
  Receipt Date: 20090511
  Transmission Date: 20091009
  Serious: Yes (Hospitalization)
  Sender: FDA-Public Use
  Company Number: CA-ASTRAZENECA-2008UW26155

PATIENT
  Age: 21973 Day
  Sex: Female

DRUGS (14)
  1. SEROQUEL XR [Suspect]
     Indication: SCHIZOPHRENIA
     Route: 048
     Dates: start: 20081012, end: 20081112
  2. SEROQUEL XR [Suspect]
     Route: 048
     Dates: start: 20081013, end: 20081013
  3. SEROQUEL XR [Suspect]
     Route: 048
     Dates: start: 20081014, end: 20081107
  4. INSULIN NOVOLIN [Concomitant]
     Indication: DIABETES MELLITUS
     Route: 058
     Dates: start: 20040101
  5. NORVASC [Concomitant]
     Indication: HYPERTENSION
     Dates: start: 20030101
  6. ALTACE [Concomitant]
     Indication: HYPERTENSION
     Dates: start: 20070301
  7. RISPERDAL [Concomitant]
     Indication: SCHIZOPHRENIA
     Dates: start: 20070101
  8. RISPERDAL [Concomitant]
     Dates: start: 20030101, end: 20081011
  9. RISPERDAL [Concomitant]
     Dates: start: 20081012, end: 20081013
  10. RISPERDAL [Concomitant]
     Dates: start: 20081014, end: 20081015
  11. TEMAZEPAM [Concomitant]
     Indication: INSOMNIA
     Route: 048
  12. CLONAZEPAM [Concomitant]
     Indication: INSOMNIA
     Route: 048
  13. LOSEC [Concomitant]
     Indication: GASTROOESOPHAGEAL REFLUX DISEASE
     Route: 048
  14. COGENTIN [Concomitant]
     Indication: AKATHISIA
     Route: 048

REACTIONS (1)
  - SCHIZOPHRENIA [None]
